FAERS Safety Report 19242702 (Version 1)
Quarter: 2021Q2

REPORT INFORMATION
  Report Type: Spontaneous
  Country: US (occurrence: US)
  Receive Date: 20210511
  Receipt Date: 20210511
  Transmission Date: 20210717
  Serious: Yes (Hospitalization)
  Sender: FDA-Public Use
  Company Number: None

PATIENT
  Age: 65 Year
  Sex: Female
  Weight: 170 kg

DRUGS (2)
  1. MEROPENEM. [Suspect]
     Active Substance: MEROPENEM
     Dates: start: 20210423
  2. DAPTOMYCIN. [Suspect]
     Active Substance: DAPTOMYCIN
     Indication: ABDOMINAL WALL ABSCESS
     Route: 042
     Dates: start: 20210422, end: 20210429

REACTIONS (3)
  - Rhabdomyolysis [None]
  - Blood creatine phosphokinase increased [None]
  - Acute kidney injury [None]

NARRATIVE: CASE EVENT DATE: 20210429
